FAERS Safety Report 6504471-6 (Version None)
Quarter: 2009Q4

REPORT INFORMATION
  Report Type: 
  Country: None (occurrence: None)
  Receive Date: 20091217
  Receipt Date: 20091208
  Transmission Date: 20100525
  Serious: Yes (Hospitalization)
  Sender: FDA-Public Use
  Company Number: US-AMGEN-US373820

PATIENT
  Sex: Female
  Weight: 93.9 kg

DRUGS (7)
  1. NPLATE [Suspect]
     Indication: THROMBOCYTOPENIA
     Dates: start: 20091027
  2. GLUCOPHAGE [Concomitant]
  3. DIOVAN [Concomitant]
  4. TYLOX [Concomitant]
  5. COLACE [Concomitant]
  6. PLATELETS [Concomitant]
  7. HUMAN RED BLOOD CELLS [Concomitant]

REACTIONS (4)
  - BACTEROIDES INFECTION [None]
  - PERIRECTAL ABSCESS [None]
  - STREPTOCOCCAL ABSCESS [None]
  - THROMBOCYTOPENIA [None]
